FAERS Safety Report 6340290-1 (Version None)
Quarter: 2009Q3

REPORT INFORMATION
  Report Type: 
  Country: None (occurrence: None)
  Receive Date: 20090902
  Receipt Date: 20090818
  Transmission Date: 20100115
  Serious: Yes (Hospitalization)
  Sender: FDA-Public Use
  Company Number: IDR-00295

PATIENT
  Age: 89 Year
  Sex: Female

DRUGS (12)
  1. INDERAL [Suspect]
     Indication: ATRIAL FIBRILLATION
     Dosage: 160 MG DAILY, ORAL FORMULATION: CAPSULE CONTR REL
     Route: 048
  2. PROPOFOL [Suspect]
     Dates: start: 20090601, end: 20090601
  3. NOLVADEX [Concomitant]
  4. IMDUR [Concomitant]
  5. LOSEC MUPS (OMEPRAZOLE MAGNESIUM) [Concomitant]
  6. NITROMEX (GLYCERYL TRINITRATE) [Concomitant]
  7. ACETAMINOPHEN [Concomitant]
  8. BEHEPAN (CYANOCOBALAMIN) [Concomitant]
  9. IMPUGAN (FUROSEMIDE) [Concomitant]
  10. IMOVANE (ZOPICLONE) [Concomitant]
  11. NO MATCH (NO MATCH) [Concomitant]
  12. NOVOMIX 30 (INSULIN ASPART, PROTAMINE INSULIN ASPART) [Concomitant]

REACTIONS (1)
  - SINOATRIAL BLOCK [None]
